FAERS Safety Report 4284830-5 (Version None)
Quarter: 2004Q1

REPORT INFORMATION
  Report Type: 
  Country: None (occurrence: None)
  Receive Date: 20040204
  Receipt Date: 19990420
  Transmission Date: 20041129
  Serious: Yes (Disabling)
  Sender: FDA-Public Use
  Company Number: B045691

PATIENT
  Age: 30 Year
  Sex: Male

DRUGS (2)
  1. KENACORT [Suspect]
     Indication: UVEITIS
     Route: 031
     Dates: start: 19990101, end: 19990101
  2. KENACORT [Suspect]
     Indication: MACULAR OEDEMA
     Route: 031
     Dates: start: 19990101, end: 19990101

REACTIONS (4)
  - FOREIGN BODY TRAUMA [None]
  - INJECTION SITE REACTION [None]
  - MEDICATION ERROR [None]
  - OCULAR HYPERTENSION [None]
